FAERS Safety Report 10455026 (Version 1)
Quarter: 2014Q3

REPORT INFORMATION
  Report Type: Spontaneous
  Country: IT (occurrence: IT)
  Receive Date: 20140915
  Receipt Date: 20140915
  Transmission Date: 20150326
  Serious: Yes (Hospitalization)
  Sender: FDA-Public Use
  Company Number: PHHY2014IT115566

PATIENT
  Sex: Male

DRUGS (1)
  1. LORAZEPAM. [Suspect]
     Active Substance: LORAZEPAM
     Dosage: 9 DF, ONCE/SINGLE
     Route: 048
     Dates: start: 20140803, end: 20140803

REACTIONS (3)
  - Suicide attempt [Unknown]
  - Excoriation [Unknown]
  - Drug abuse [Unknown]

NARRATIVE: CASE EVENT DATE: 20140803
